FAERS Safety Report 5238667-0 (Version None)
Quarter: 2007Q1

REPORT INFORMATION
  Report Type: 
  Country: None (occurrence: None)
  Receive Date: 20070215
  Receipt Date: 20070209
  Transmission Date: 20070707
  Serious: Yes (Hospitalization)
  Sender: FDA-Public Use
  Company Number: US-SANOFI-SYNTHELABO-D01200700907

PATIENT
  Sex: Female
  Weight: 57.2 kg

DRUGS (8)
  1. ATIVAN [Concomitant]
     Indication: NAUSEA
  2. DETROL [Concomitant]
     Indication: INCONTINENCE
  3. COUMADIN [Concomitant]
  4. SR57746 OR PLACEBO [Suspect]
     Indication: NEUROLOGICAL SYMPTOM
     Route: 048
     Dates: start: 20061130, end: 20070103
  5. AVASTIN [Suspect]
     Dates: start: 20061221, end: 20061221
  6. LEUCOVORIN CALCIUM [Suspect]
     Route: 042
     Dates: start: 20061221, end: 20061221
  7. FLUOROURACIL [Suspect]
     Dosage: 400 MG/M?, IV BOLUS D1+D2 FOLLOWED BY 5-FU 2400 MG/M? OVER 46-HOUR CONTINUOUS INFUSION.
     Route: 042
     Dates: start: 20061221, end: 20061221
  8. OXALIPLATIN [Suspect]
     Route: 042
     Dates: start: 20061221, end: 20061221

REACTIONS (7)
  - ASTHENIA [None]
  - DIVERTICULAR PERFORATION [None]
  - HALLUCINATION [None]
  - LARGE INTESTINE PERFORATION [None]
  - PARTIAL SEIZURES [None]
  - PERITONITIS [None]
  - SYNCOPE [None]
